FAERS Safety Report 5149012-3 (Version None)
Quarter: 2006Q4

REPORT INFORMATION
  Report Type: 
  Country: None (occurrence: None)
  Receive Date: 20061108
  Receipt Date: 20061025
  Transmission Date: 20070319
  Serious: Yes (Hospitalization, Other)
  Sender: FDA-Public Use
  Company Number: 2006SP005091

PATIENT
  Age: 60 Year
  Sex: Female

DRUGS (4)
  1. PEG-INTRON [Suspect]
     Indication: HEPATITIS B
     Dosage: SC
     Route: 058
     Dates: start: 20060825
  2. PEG-INTRON [Suspect]
     Indication: HEPATITIS C
     Dosage: SC
     Route: 058
     Dates: start: 20060825
  3. RIBAVINR [Suspect]
     Indication: HEPATITIS B
     Dosage: PO
     Route: 048
     Dates: start: 20060825
  4. RIBAVINR [Suspect]
     Indication: HEPATITIS C
     Dosage: PO
     Route: 048
     Dates: start: 20060825

REACTIONS (6)
  - ANAEMIA [None]
  - BLOOD PRESSURE DECREASED [None]
  - BRONCHITIS [None]
  - DYSPNOEA [None]
  - LOSS OF CONSCIOUSNESS [None]
  - SYNCOPE [None]
